FAERS Safety Report 9076781 (Version 1)
Quarter: 2013Q1

REPORT INFORMATION
  Report Type: Report from Study
  Country: US (occurrence: US)
  Receive Date: 20130129
  Receipt Date: 20130129
  Transmission Date: 20140127
  Serious: No
  Sender: FDA-Public Use
  Company Number: US-ABBOTT-12P-163-0916814-00

PATIENT
  Age: 48 Year
  Sex: Female

DRUGS (18)
  1. HUMIRA 40 MG/0.8 ML PEN [Suspect]
     Indication: CROHN^S DISEASE
     Dates: start: 20120217, end: 20120217
  2. HUMIRA 40 MG/0.8 ML PEN [Suspect]
     Dates: start: 20120302, end: 20120302
  3. HUMIRA 40 MG/0.8 ML PEN [Suspect]
     Dates: start: 20120316, end: 201204
  4. HUMIRA 40 MG/0.8 ML PEN [Suspect]
     Dates: start: 20120217, end: 20120217
  5. HUMIRA 40 MG/0.8 ML PEN [Suspect]
     Dates: start: 201204, end: 20120430
  6. SINGULAR [Concomitant]
     Indication: HYPERSENSITIVITY
     Route: 048
  7. ASTELIN [Concomitant]
     Indication: ASTHMA
     Dosage: ONE SPRAY PER NOSTRIL DAILY
     Route: 045
  8. ASTELIN [Concomitant]
     Indication: HYPERSENSITIVITY
  9. NASONEX [Concomitant]
     Indication: ASTHMA
     Dosage: ONE SPRAY PER NOSTRIL DAILY
     Route: 045
  10. NASONEX [Concomitant]
     Indication: HYPERSENSITIVITY
  11. ALBUTEROL [Concomitant]
     Indication: ASTHMA
     Dosage: RESCUE INHALER
  12. PRO-AIR [Concomitant]
     Indication: ASTHMA
     Dosage: RESCUE INHALER
  13. ADVAIR [Concomitant]
     Indication: ASTHMA
     Dosage: 150/50 ONE DISK
  14. ADVAIR [Concomitant]
     Dosage: 2 PUFFS
     Dates: start: 20120413
  15. ZOLOFT [Concomitant]
     Indication: DEPRESSION
  16. VALIUM [Concomitant]
     Indication: ANXIETY
     Route: 048
  17. DEXILANT [Concomitant]
     Indication: ULCER
     Route: 048
  18. ENTOCORT [Concomitant]
     Indication: CROHN^S DISEASE
     Route: 048

REACTIONS (13)
  - Middle ear effusion [Not Recovered/Not Resolved]
  - Headache [Not Recovered/Not Resolved]
  - Injection site pain [Not Recovered/Not Resolved]
  - Asthma [Not Recovered/Not Resolved]
  - Injection site bruising [Recovered/Resolved]
  - Injection site erythema [Not Recovered/Not Resolved]
  - Sinusitis [Not Recovered/Not Resolved]
  - Asthma [Not Recovered/Not Resolved]
  - Migraine [Not Recovered/Not Resolved]
  - Erythema [Not Recovered/Not Resolved]
  - Rash [Not Recovered/Not Resolved]
  - Pruritus [Not Recovered/Not Resolved]
  - Nasal congestion [Not Recovered/Not Resolved]
